FAERS Safety Report 4429054-3 (Version None)
Quarter: 2004Q3

REPORT INFORMATION
  Report Type: 
  Country: None (occurrence: None)
  Receive Date: 20040818
  Receipt Date: 20040811
  Transmission Date: 20050211
  Serious: Yes (Other)
  Sender: FDA-Public Use
  Company Number: US-MERCK-0408USA01042

PATIENT
  Sex: Male

DRUGS (2)
  1. ZETIA [Suspect]
     Indication: BLOOD CHOLESTEROL INCREASED
     Route: 048
     Dates: start: 20040401, end: 20040701
  2. LITHIUM-ASPARTAT [Concomitant]
     Route: 065

REACTIONS (2)
  - DYSPNOEA [None]
  - FULL BLOOD COUNT DECREASED [None]
